FAERS Safety Report 7470939-1 (Version None)
Quarter: 2011Q2

REPORT INFORMATION
  Report Type: 
  Country: None (occurrence: None)
  Receive Date: 20110510
  Receipt Date: 20110503
  Transmission Date: 20111010
  Serious: No
  Sender: FDA-Public Use
  Company Number: US-PFIZER INC-2011095894

PATIENT
  Sex: Male

DRUGS (2)
  1. ZITHROMAX [Suspect]
     Dosage: UNK
  2. MENINGOCOCCAL VACCINE [Concomitant]
     Dosage: UNK
     Dates: start: 20110412

REACTIONS (1)
  - DRUG HYPERSENSITIVITY [None]
